FAERS Safety Report 15931139 (Version 1)
Quarter: 2019Q1

REPORT INFORMATION
  Report Type: Report from Study
  Country: US (occurrence: US)
  Receive Date: 20190207
  Receipt Date: 20190207
  Transmission Date: 20190417
  Serious: No
  Sender: FDA-Public Use
  Company Number: PHEH2019US005196

PATIENT
  Sex: Male

DRUGS (1)
  1. COSENTYX [Suspect]
     Active Substance: SECUKINUMAB
     Indication: PSORIATIC ARTHROPATHY
     Dosage: 300 MG, UNK (ON THE 1ST AND 15TH OF EACH MONTH)
     Route: 058

REACTIONS (6)
  - Arthritis [Unknown]
  - Inappropriate schedule of product administration [Unknown]
  - Pain [Unknown]
  - Mobility decreased [Unknown]
  - Drug ineffective [Unknown]
  - Psoriasis [Unknown]
